FAERS Safety Report 20887500 (Version 1)
Quarter: 2022Q2

REPORT INFORMATION
  Report Type: Other
  Country: GB (occurrence: GB)
  Receive Date: 20220528
  Receipt Date: 20220528
  Transmission Date: 20220721
  Serious: Yes (Other)
  Sender: FDA-Public Use
  Company Number: None

PATIENT
  Age: 69 Year
  Sex: Male
  Weight: 58 kg

DRUGS (24)
  1. PREDNISOLONE [Suspect]
     Active Substance: PREDNISOLONE
     Indication: Chronic obstructive pulmonary disease
     Dosage: UNK
     Route: 048
     Dates: start: 20210813, end: 20210814
  2. ADCAL [Concomitant]
     Indication: Product used for unknown indication
     Dosage: 4 DOSAGE FORM, PER DAY (START DT 11 APR 2022)
     Route: 065
  3. ATORVASTATIN [Concomitant]
     Active Substance: ATORVASTATIN
     Indication: Blood cholesterol
     Dosage: 1 DOSAGE FORM, AT BED TIME (PER DAY)
     Route: 065
     Dates: start: 20200401
  4. CETRABEN [LIGHT LIQUID PARAFFIN;WHITE SOFT PARAFFIN] [Concomitant]
     Indication: Pruritus
     Dosage: UNK, PRN
     Route: 065
     Dates: start: 20200914
  5. CHOLECALCIFEROL [Concomitant]
     Active Substance: CHOLECALCIFEROL
     Indication: Product used for unknown indication
     Dosage: 1 DOSAGE FORM, QD
     Route: 065
     Dates: start: 20210607, end: 20220411
  6. DOXYCYCLINE [Concomitant]
     Active Substance: DOXYCYCLINE
     Indication: Product used for unknown indication
     Dosage: 2 DOSAGE FORM, TWO NOW THEN ONE DAILY (12 APR 2022 AND 19 APR 2022)
     Route: 065
  7. FLUTICASONE PROPIONATE [Concomitant]
     Active Substance: FLUTICASONE PROPIONATE
     Indication: Product used for unknown indication
     Dosage: 2 DOSAGE FORM, QD (TWO PUFFS ONCE DAILY)
     Route: 065
     Dates: start: 20210617
  8. FYBOGEL [Concomitant]
     Active Substance: HERBALS\PLANTAGO OVATA SEED
     Indication: Product used for unknown indication
     Dosage: 2 DOSAGE FORM PER DAY
     Route: 065
  9. ALGINIC ACID\ALUMINUM HYDROXIDE\MAGNESIUM TRISILICATE [Concomitant]
     Active Substance: ALGINIC ACID\ALUMINUM HYDROXIDE\MAGNESIUM TRISILICATE
     Indication: Product used for unknown indication
     Dosage: UNK, PRN (24 APR 2022 TO 16 MAY 2022)
     Route: 065
  10. INVITA D3 [Concomitant]
     Indication: Product used for unknown indication
     Dosage: 1 DOSAGE FORM, PER WEEK 28 APR 2022
     Route: 065
  11. ISPAGHULA EXTRACT\PSYLLIUM [Concomitant]
     Active Substance: HERBALS\PLANTAGO OVATA SEED\PLANTAGO SEED
     Indication: Product used for unknown indication
     Dosage: UNK, BID (15 MAR 2022 TO 14 APR 2022)
     Route: 065
  12. KETOCONAZOLE [Concomitant]
     Active Substance: KETOCONAZOLE
     Indication: Product used for unknown indication
     Dosage: 2 DOSAGE FORM PER DAY
     Route: 065
  13. LOPERAMIDE [Concomitant]
     Active Substance: LOPERAMIDE
     Indication: Diarrhoea
     Dosage: UNK, TAKE ONE AFTER EACH LOOSE STOOL , MAXIMUM 4 A DAY (29 MAR 2022)
     Route: 065
  14. LORATADINE [Concomitant]
     Active Substance: LORATADINE
     Indication: Pruritus
     Dosage: 1 DOSAGE FORM, QD
     Route: 065
     Dates: start: 20201126
  15. ALUMINUM HYDROXIDE\MAGNESIUM HYDROXIDE [Concomitant]
     Active Substance: ALUMINUM HYDROXIDE\MAGNESIUM HYDROXIDE
     Indication: Product used for unknown indication
     Dosage: 5 MILLILITER, PRN (10 MAY 2022)
     Route: 065
  16. METRONIDAZOLE [Concomitant]
     Active Substance: METRONIDAZOLE
     Indication: Product used for unknown indication
     Dosage: 3 DOSAGE FORM PER DAY (24 APR 2022 -27 APR 2022)
     Route: 065
  17. MICONAZOLE [Concomitant]
     Active Substance: MICONAZOLE
     Indication: Product used for unknown indication
     Dosage: 2 DOSAGE FORM PER DAY, APPLY TWICE DAILY TO AFFECTED AREAS
     Route: 065
  18. OMEPRAZOLE [Concomitant]
     Active Substance: OMEPRAZOLE
     Indication: Product used for unknown indication
     Dosage: 2 DOSAGE FORM PER DAY
     Route: 065
     Dates: start: 20210406
  19. OTOMIZE [Concomitant]
     Indication: Product used for unknown indication
     Dosage: 3 DOSAGE FORM PER DAY, APPLY ONE SPRAY THREE TIMES A DAY
     Route: 065
  20. ACETAMINOPHEN [Concomitant]
     Active Substance: ACETAMINOPHEN
     Indication: Product used for unknown indication
     Dosage: UNK (ONE TO TWO TABLETS TO BE TAKEN EVERY FOUR)
     Route: 065
     Dates: start: 20200512
  21. PROCHLORPERAZINE [Concomitant]
     Active Substance: PROCHLORPERAZINE
     Indication: Nausea
     Dosage: 3 DOSAGE FORM PER DAY (13 MAR 2022-22 MAR 2022)
     Route: 065
  22. ALBUTEROL [Concomitant]
     Active Substance: ALBUTEROL
     Indication: Product used for unknown indication
     Dosage: 2 DOSAGE FORM, PRN
     Route: 065
     Dates: start: 20210607
  23. SODIUM BICARBONATE [Concomitant]
     Active Substance: SODIUM BICARBONATE
     Indication: Product used for unknown indication
     Dosage: UNK, BID (29 MAR 2022-30 MAR 2022)
     Route: 065
  24. SOPROBEC [Concomitant]
     Indication: Product used for unknown indication
     Dosage: 2 DOSAGE FORM PER DAY, INHALE 1 DOSE TWICE DAILY
     Route: 065
     Dates: start: 20210706

REACTIONS (2)
  - Hallucination, auditory [Recovered/Resolved]
  - Paranoia [Recovered/Resolved]

NARRATIVE: CASE EVENT DATE: 20210813
